FAERS Safety Report 5150337-6 (Version None)
Quarter: 2006Q4

REPORT INFORMATION
  Report Type: 
  Country: None (occurrence: None)
  Receive Date: 20061108
  Receipt Date: 20061030
  Transmission Date: 20070319
  Serious: Yes (Other)
  Sender: FDA-Public Use
  Company Number: 2006108772

PATIENT
  Age: 58 Year
  Sex: Male
  Weight: 69.5 kg

DRUGS (5)
  1. ATORVASTATIN CALCIUM [Suspect]
     Indication: BLOOD CHOLESTEROL INCREASED
     Dosage: (80 MG, 1 IN 1 D); ORAL
     Route: 048
     Dates: start: 20051001, end: 20060901
  2. ATORVASTATIN CALCIUM [Suspect]
     Indication: CARDIAC DISORDER
     Dosage: (80 MG, 1 IN 1 D); ORAL
     Route: 048
     Dates: start: 20051001, end: 20060901
  3. ALPRAZOLAM [Concomitant]
  4. ASPIRIN [Concomitant]
  5. BETAXOLOL [Concomitant]

REACTIONS (2)
  - CHOLESTASIS [None]
  - CONDITION AGGRAVATED [None]
